FAERS Safety Report 14935416 (Version 1)
Quarter: 2018Q2

REPORT INFORMATION
  Report Type: Spontaneous
  Country: US (occurrence: US)
  Receive Date: 20180524
  Receipt Date: 20180524
  Transmission Date: 20180711
  Serious: Yes (Other)
  Sender: FDA-Public Use
  Company Number: US-ELI_LILLY_AND_COMPANY-US201805007100

PATIENT
  Age: 39 Year
  Sex: Male
  Weight: 86.18 kg

DRUGS (4)
  1. ZYPREXA [Suspect]
     Active Substance: OLANZAPINE
     Indication: SCHIZOPHRENIA
  2. HALDOL [Suspect]
     Active Substance: HALOPERIDOL
     Indication: SCHIZOPHRENIA
     Dosage: 60 MG, DAILY
     Route: 048
  3. ZYPREXA [Suspect]
     Active Substance: OLANZAPINE
     Indication: DELUSION
     Dosage: UNK UNK, UNKNOWN
     Route: 065
     Dates: start: 19990426
  4. HALDOL [Suspect]
     Active Substance: HALOPERIDOL
     Dosage: 40 MG, DAILY
     Route: 048
     Dates: start: 2006

REACTIONS (8)
  - Loss of consciousness [Unknown]
  - Mental impairment [Unknown]
  - Blood cholesterol [Unknown]
  - Gastrooesophageal reflux disease [Unknown]
  - Blood pressure decreased [Unknown]
  - Abnormal dreams [Not Recovered/Not Resolved]
  - Drug ineffective [Not Recovered/Not Resolved]
  - Tremor [Not Recovered/Not Resolved]
